FAERS Safety Report 8363459-3 (Version None)
Quarter: 2012Q2

REPORT INFORMATION
  Report Type: 
  Country: None (occurrence: None)
  Receive Date: 20120516
  Receipt Date: 20120507
  Transmission Date: 20120825
  Serious: Yes (Hospitalization)
  Sender: FDA-Public Use
  Company Number: ES-JNJFOC-20120509847

PATIENT
  Sex: Female

DRUGS (8)
  1. ENALAPRIL MALEATE [Concomitant]
     Indication: HYPERTENSION
     Route: 065
  2. INSULIN [Concomitant]
     Indication: DIABETES MELLITUS
     Route: 065
  3. SINTROM [Concomitant]
     Indication: CARDIAC DISORDER
     Route: 065
  4. FLECAINIDE ACETATE [Concomitant]
     Indication: ATRIAL FIBRILLATION
     Route: 065
  5. SANDIMMUNE [Concomitant]
     Indication: PSORIASIS
     Route: 065
  6. SANDIMMUNE [Concomitant]
     Route: 065
     Dates: start: 20101201
  7. DIGOXIN [Concomitant]
     Indication: ATRIAL FIBRILLATION
     Route: 065
  8. STELARA [Suspect]
     Indication: PSORIASIS
     Route: 058
     Dates: start: 20090901

REACTIONS (1)
  - CEREBRAL HAEMORRHAGE [None]
